FAERS Safety Report 7757381-0 (Version None)
Quarter: 2011Q3

REPORT INFORMATION
  Report Type: 
  Country: None (occurrence: None)
  Receive Date: 20110916
  Receipt Date: 20110912
  Transmission Date: 20111222
  Serious: Yes (Death)
  Sender: FDA-Public Use
  Company Number: TN-SANOFI-AVENTIS-2011SA059909

PATIENT
  Age: 60 Year
  Sex: Male

DRUGS (9)
  1. PLAVIX [Suspect]
     Indication: CORONARY ARTERIAL STENT INSERTION
     Route: 048
     Dates: start: 20100629, end: 20100723
  2. HYPOTEN [Concomitant]
     Route: 048
     Dates: end: 20100723
  3. INSULATARD NPH HUMAN [Concomitant]
     Route: 058
     Dates: end: 20100723
  4. ASPIRIN [Concomitant]
     Route: 048
     Dates: end: 20100723
  5. PLAVIX [Suspect]
     Route: 048
     Dates: start: 20100629, end: 20100723
  6. CAPTOPRIL [Concomitant]
     Route: 048
     Dates: end: 20100723
  7. RAMIPRIL [Concomitant]
     Route: 048
     Dates: end: 20100723
  8. CRESTOR [Concomitant]
     Route: 048
     Dates: end: 20100723
  9. FAMOTIDINE [Concomitant]
     Route: 048
     Dates: end: 20100723

REACTIONS (1)
  - CARDIAC ARREST [None]
